FAERS Safety Report 25504315 (Version 2)
Quarter: 2025Q3

REPORT INFORMATION
  Report Type: Report from Study
  Country: US (occurrence: US)
  Receive Date: 20250702
  Receipt Date: 20250711
  Transmission Date: 20251021
  Serious: No
  Sender: PFIZER
  Company Number: US-PFIZER INC-PV202500078675

PATIENT
  Age: 44 Year
  Sex: Female

DRUGS (4)
  1. BRAFTOVI [Suspect]
     Active Substance: ENCORAFENIB
     Indication: Colon cancer
     Dosage: 300 MG ORALLY ONCE DAILY
     Route: 048
     Dates: start: 20250609, end: 20250613
  2. ERBITUX [Suspect]
     Active Substance: CETUXIMAB
     Dates: start: 20250609
  3. VECTIBIX [Suspect]
     Active Substance: PANITUMUMAB
     Dates: start: 20250630
  4. CAPECITABINE [Concomitant]
     Active Substance: CAPECITABINE

REACTIONS (8)
  - Myalgia [Recovered/Resolved]
  - Dyspnoea [Recovered/Resolved]
  - Abdominal pain [Recovered/Resolved]
  - Muscle spasms [Recovered/Resolved]
  - Mental disorder [Not Recovered/Not Resolved]
  - Bowel movement irregularity [Recovered/Resolved]
  - Burning sensation [Recovered/Resolved]
  - Feeling of body temperature change [Recovered/Resolved]

NARRATIVE: CASE EVENT DATE: 20250609
